FAERS Safety Report 8001346-0 (Version None)
Quarter: 2011Q4

REPORT INFORMATION
  Report Type: 
  Country: None (occurrence: None)
  Receive Date: 20111222
  Receipt Date: 20111220
  Transmission Date: 20120403
  Serious: Yes (Hospitalization, Other)
  Sender: FDA-Public Use
  Company Number: SE-PFIZER INC-2011308163

PATIENT
  Age: 34 Year
  Sex: Female

DRUGS (2)
  1. PREDNISOLONE [Suspect]
     Indication: PSORIATIC ARTHROPATHY
     Dosage: 7.5 MG/24 H
     Route: 048
  2. SULFASALAZINE [Suspect]
     Dosage: 500 MG, 4X/DAY
     Route: 048

REACTIONS (2)
  - INTRA-UTERINE DEATH [None]
  - UTERINE PERFORATION [None]
